FAERS Safety Report 7699876-4 (Version None)
Quarter: 2011Q3

REPORT INFORMATION
  Report Type: 
  Country: None (occurrence: None)
  Receive Date: 20110822
  Receipt Date: 20110808
  Transmission Date: 20111222
  Serious: Yes (Hospitalization)
  Sender: FDA-Public Use
  Company Number: DE-MYLANLABS-2011S1016501

PATIENT
  Age: 92 Year
  Sex: Female

DRUGS (2)
  1. TAMOXIFEN CITRATE [Suspect]
     Indication: BREAST CANCER
     Dosage: 30MG DAILY
     Route: 065
  2. WARFARIN SODIUM [Concomitant]
     Route: 065

REACTIONS (1)
  - STRESS CARDIOMYOPATHY [None]
